FAERS Safety Report 4396991-8 (Version None)
Quarter: 2004Q3

REPORT INFORMATION
  Report Type: 
  Country: None (occurrence: None)
  Receive Date: 20040713
  Receipt Date: 20040713
  Transmission Date: 20050211
  Serious: No
  Sender: FDA-Public Use
  Company Number: None

PATIENT
  Age: 48 Year
  Sex: Female
  Weight: 74.8435 kg

DRUGS (1)
  1. YASMIN [Suspect]
     Indication: THROMBOPHLEBITIS
     Dosage: 1 DAY ORAL
     Route: 048
     Dates: start: 20040613, end: 20040627

REACTIONS (1)
  - THROMBOPHLEBITIS SUPERFICIAL [None]
